FAERS Safety Report 18686123 (Version 1)
Quarter: 2020Q4

REPORT INFORMATION
  Report Type: Other
  Country: GR (occurrence: GR)
  Receive Date: 20201231
  Receipt Date: 20201231
  Transmission Date: 20210114
  Serious: Yes (Other)
  Sender: FDA-Public Use
  Company Number: GR-ROCHE-2740022

PATIENT
  Sex: Male

DRUGS (12)
  1. PALONOSETRON HYDROCHLORIDE. [Concomitant]
     Active Substance: PALONOSETRON HYDROCHLORIDE
     Indication: PROPHYLAXIS OF NAUSEA AND VOMITING
     Dosage: 0.25 MG (DAYS 1, 3, AND 5), CYCLICAL
     Route: 048
     Dates: start: 201909
  2. GLUCOSE [Concomitant]
     Active Substance: DEXTROSE
  3. DEXAMETHASONE. [Suspect]
     Active Substance: DEXAMETHASONE
     Indication: SEIZURE
     Dosage: 6 MILLIGRAM, BID
     Route: 048
     Dates: start: 2019, end: 2020
  4. LOPERAMIDE [Concomitant]
     Active Substance: LOPERAMIDE
     Indication: PROPHYLAXIS AGAINST DIARRHOEA
     Dosage: UNK
     Dates: start: 201909
  5. IRINOTECAN [Suspect]
     Active Substance: IRINOTECAN
     Indication: GLIOBLASTOMA MULTIFORME
     Dosage: INITIALLY AT 30 MG/M^2 (WITH A PLAN OF DOSE ESCALATION UP TO 50 MG/M^2 IN THE ABSENCE OF SIGNIFICANT
     Route: 042
     Dates: start: 201909
  6. TEMOZOLOMIDE. [Suspect]
     Active Substance: TEMOZOLOMIDE
     Indication: GLIOBLASTOMA MULTIFORME
     Dosage: 100 MILLIGRAM/SQ. METER, CYCLICAL
     Route: 048
     Dates: start: 201909
  7. CEFIXIME. [Concomitant]
     Active Substance: CEFIXIME
     Indication: PROPHYLAXIS
     Dosage: 400 MG OD BETWEEN DAYS -2 AND +10 OF EACH COURSE
     Route: 048
     Dates: start: 201909
  8. SODIUM CHLORIDE. [Concomitant]
     Active Substance: SODIUM CHLORIDE
     Dosage: 50 MILLILITER
     Route: 042
     Dates: start: 201909
  9. BEVACIZUMAB. [Suspect]
     Active Substance: BEVACIZUMAB
     Indication: GLIOBLASTOMA MULTIFORME
     Dosage: 15 MG/KG ON DAY 1, CYCLICAL
     Route: 065
     Dates: start: 201909
  10. DIMETINDENE MALEATE [Concomitant]
     Active Substance: DIMETHINDENE MALEATE
     Dosage: 2 MILLIGRAM, CYCLICAL
     Route: 042
     Dates: start: 201909
  11. APREPITANT. [Concomitant]
     Active Substance: APREPITANT
     Indication: PROPHYLAXIS OF NAUSEA AND VOMITING
     Dosage: 125 MG O.D. ON DAY 1 FOLLOWED BY 80 MG O.D. ON DAYS 2-5, CYCLICAL
     Dates: start: 201909
  12. VINCRISTINE [Suspect]
     Active Substance: VINCRISTINE
     Indication: GLIOBLASTOMA MULTIFORME
     Dosage: 2 MG ON DAY 1, CYCLICAL
     Route: 042
     Dates: start: 201909

REACTIONS (3)
  - Drug-induced liver injury [Recovered/Resolved]
  - Off label use [Unknown]
  - Intentional product use issue [Unknown]

NARRATIVE: CASE EVENT DATE: 2019
